FAERS Safety Report 7789285-1 (Version None)
Quarter: 2011Q3

REPORT INFORMATION
  Report Type: 
  Country: None (occurrence: None)
  Receive Date: 20110930
  Receipt Date: 20110926
  Transmission Date: 20111222
  Serious: Yes (Hospitalization)
  Sender: FDA-Public Use
  Company Number: FR-GLAXOSMITHKLINE-A0843927A

PATIENT
  Sex: Male
  Weight: 85 kg

DRUGS (3)
  1. RADIOTHERAPY [Concomitant]
     Indication: HEAD AND NECK CANCER
     Dosage: 6GY VARIABLE DOSE
     Route: 061
     Dates: start: 20100105
  2. LAPATINIB [Suspect]
     Indication: HEAD AND NECK CANCER
     Dosage: 1500MG PER DAY
     Route: 048
     Dates: start: 20100102
  3. CISPLATIN [Suspect]
     Indication: HEAD AND NECK CANCER
     Dosage: 100MGM2 CYCLIC
     Route: 042
     Dates: start: 20100105

REACTIONS (1)
  - DYSPHAGIA [None]
